FAERS Safety Report 4493381-4 (Version None)
Quarter: 2004Q4

REPORT INFORMATION
  Report Type: 
  Country: None (occurrence: None)
  Receive Date: 20041102
  Receipt Date: 20040921
  Transmission Date: 20050328
  Serious: Yes (Death)
  Sender: FDA-Public Use
  Company Number: MK200410-0303-1

PATIENT
  Age: 65 Year
  Sex: Male

DRUGS (1)
  1. RESTORIL [Suspect]

REACTIONS (4)
  - COMA [None]
  - HEPATIC FAILURE [None]
  - HEPATITIS ACUTE [None]
  - RESPIRATORY FAILURE [None]
